FAERS Safety Report 10307513 (Version 1)
Quarter: 2014Q3

REPORT INFORMATION
  Report Type: Spontaneous
  Country: US (occurrence: None)
  Receive Date: 20140714
  Receipt Date: 20140714
  Transmission Date: 20150326
  Serious: Yes (Other)
  Sender: FDA-Public Use
  Company Number: None

PATIENT
  Age: 54 Year
  Sex: Female

DRUGS (1)
  1. TECFIDERA [Suspect]
     Active Substance: DIMETHYL FUMARATE
     Indication: MULTIPLE SCLEROSIS
     Dosage: 1, TWICE DAILY?
     Dates: start: 20140626, end: 20140710

REACTIONS (7)
  - Nausea [None]
  - Vomiting [None]
  - Abdominal pain upper [None]
  - Gastric disorder [None]
  - Pyrexia [None]
  - Bedridden [None]
  - Chills [None]

NARRATIVE: CASE EVENT DATE: 20140709
